FAERS Safety Report 4707017-8 (Version None)
Quarter: 2005Q3

REPORT INFORMATION
  Report Type: 
  Country: None (occurrence: None)
  Receive Date: 20050701
  Receipt Date: 20050701
  Transmission Date: 20060218
  Serious: Yes (Hospitalization, Other)
  Sender: FDA-Public Use
  Company Number: None

PATIENT

DRUGS (2)
  1. TEMODAR [Suspect]
     Indication: GLIOBLASTOMA MULTIFORME
     Dosage: 5600 MG
     Dates: start: 20050410, end: 20050520
  2. RADIATION [Suspect]
     Dosage: 6000 CGY
     Dates: end: 20050520

REACTIONS (1)
  - NEPHROLITHIASIS [None]
